FAERS Safety Report 4865603-9 (Version None)
Quarter: 2005Q4

REPORT INFORMATION
  Report Type: 
  Country: None (occurrence: None)
  Receive Date: 20051221
  Receipt Date: 20051221
  Transmission Date: 20060501
  Serious: Yes (Hospitalization)
  Sender: FDA-Public Use
  Company Number: None

PATIENT
  Age: 77 Year
  Sex: Male
  Weight: 115 kg

DRUGS (2)
  1. FENTANYL [Suspect]
  2. HYDROCODONE 5MG/APAP 500MG [Concomitant]

REACTIONS (3)
  - CHILLS [None]
  - MIOSIS [None]
  - PYREXIA [None]
